FAERS Safety Report 19058596 (Version 6)
Quarter: 2023Q4

REPORT INFORMATION
  Report Type: Spontaneous
  Country: AT (occurrence: AT)
  Receive Date: 20210325
  Receipt Date: 20231204
  Transmission Date: 20240110
  Serious: Yes (Hospitalization, Other)
  Sender: FDA-Public Use
  Company Number: PHHY2018AT143522

PATIENT
  Age: 61 Year
  Sex: Female
  Weight: 80 kg

DRUGS (68)
  1. LAPATINIB [Suspect]
     Active Substance: LAPATINIB
     Indication: HER2 positive breast cancer
     Dosage: 1000 MG, QD
     Route: 048
     Dates: start: 20181227, end: 20190116
  2. LAPATINIB [Suspect]
     Active Substance: LAPATINIB
     Dosage: 750 MG, QD
     Route: 048
     Dates: start: 20190116, end: 20190206
  3. CAPECITABINE [Suspect]
     Active Substance: CAPECITABINE
     Indication: Breast cancer metastatic
     Dosage: 3500 MG, QD (DOSE ON: 04/SEP/2018, 10/SEP/2018, 27/MAY/2019)
     Route: 048
     Dates: start: 20180904, end: 20180910
  4. CAPECITABINE [Suspect]
     Active Substance: CAPECITABINE
     Dosage: 3500 MG, QD (MOST RECENT DOSE PRIOR TO THE EVENT: 17/JUN/2019)
     Route: 048
     Dates: start: 20180904
  5. VINORELBINE [Suspect]
     Active Substance: VINORELBINE TARTRATE
     Indication: Breast cancer metastatic
     Dosage: 50 MG (ONE DOSE ON 30/MAY/2017, 27/JUN/2017)
     Route: 048
     Dates: start: 20170306
  6. ADO-TRASTUZUMAB EMTANSINE [Suspect]
     Active Substance: ADO-TRASTUZUMAB EMTANSINE
     Indication: Breast cancer metastatic
     Dosage: 480 MG, TIW (DOSE ON 21 NOV 2017, 04 SEP 2018, 23 OCT 2018, 27 MAY 2019)
     Route: 042
     Dates: start: 20170306
  7. ADO-TRASTUZUMAB EMTANSINE [Suspect]
     Active Substance: ADO-TRASTUZUMAB EMTANSINE
     Dosage: 3.6 MG/M2, TIW (DOSE ON 24/APR/2018, 15/MAY/2018, 13/AUG/2018)
     Route: 042
     Dates: start: 20171212, end: 20180424
  8. ADO-TRASTUZUMAB EMTANSINE [Suspect]
     Active Substance: ADO-TRASTUZUMAB EMTANSINE
     Dosage: 3.3 MG/M2, TIW (MOST RECENT DOSE PRIOR TO THE EVENT)
     Route: 042
     Dates: start: 20180515
  9. ADO-TRASTUZUMAB EMTANSINE [Suspect]
     Active Substance: ADO-TRASTUZUMAB EMTANSINE
     Dosage: 3.3 MG/M2, TIW (MOST RECENT DOSE PRIOR TO THE EVENT)
     Route: 042
     Dates: start: 20180515
  10. ADO-TRASTUZUMAB EMTANSINE [Suspect]
     Active Substance: ADO-TRASTUZUMAB EMTANSINE
     Dosage: UNK
     Route: 065
  11. ADO-TRASTUZUMAB EMTANSINE [Suspect]
     Active Substance: ADO-TRASTUZUMAB EMTANSINE
     Dosage: UNK
     Route: 065
  12. ADO-TRASTUZUMAB EMTANSINE [Suspect]
     Active Substance: ADO-TRASTUZUMAB EMTANSINE
     Dosage: UNK
     Route: 065
  13. ADO-TRASTUZUMAB EMTANSINE [Suspect]
     Active Substance: ADO-TRASTUZUMAB EMTANSINE
     Dosage: UNK
     Route: 065
  14. TRASTUZUMAB [Suspect]
     Active Substance: TRASTUZUMAB
     Indication: Breast cancer metastatic
     Dosage: 1440 MG, QW (480 MG, TIW (DOSE ON 21/NOV/2017, 04/SEP/2018, 23/OCT/2018, 27/MAY/2019))
     Route: 042
     Dates: start: 20170306
  15. PERTUZUMAB [Suspect]
     Active Substance: PERTUZUMAB
     Indication: Breast cancer metastatic
     Dosage: 420 MG, TIW
     Route: 042
     Dates: start: 20170306, end: 20171121
  16. NAVELBINE [Suspect]
     Active Substance: VINORELBINE TARTRATE
     Indication: HER2 positive breast cancer
     Dosage: 50 MG (MOST RECENT DOSE PRIOR TO THE EVENT: 27/JUN/2017)
     Route: 048
     Dates: start: 20170306, end: 20170530
  17. DEXAMETHASONE [Concomitant]
     Active Substance: DEXAMETHASONE
     Indication: Product used for unknown indication
     Dosage: UNK
     Route: 065
     Dates: start: 20170829, end: 20180813
  18. DEXAMETHASONE [Concomitant]
     Active Substance: DEXAMETHASONE
     Dosage: UNK
     Route: 065
     Dates: start: 20181013
  19. EMEND [Concomitant]
     Active Substance: APREPITANT
     Indication: Product used for unknown indication
     Dosage: UNK
     Route: 065
     Dates: start: 20180127, end: 20181013
  20. EMEND [Concomitant]
     Active Substance: APREPITANT
     Dosage: UNK
     Route: 065
     Dates: start: 20180128, end: 20181014
  21. EMEND [Concomitant]
     Active Substance: APREPITANT
     Dosage: UNK
     Route: 065
     Dates: start: 20180129, end: 20181015
  22. ZYRTEC [Concomitant]
     Active Substance: CETIRIZINE HYDROCHLORIDE
     Indication: Pruritus
     Dosage: UNK
     Route: 065
  23. KYTRIL [Concomitant]
     Active Substance: GRANISETRON HYDROCHLORIDE
     Indication: Product used for unknown indication
     Dosage: UNK
     Route: 065
     Dates: start: 20171212, end: 20181013
  24. PASPERTIN [Concomitant]
     Indication: Product used for unknown indication
     Dosage: UNK
     Route: 065
     Dates: start: 20171212, end: 20190907
  25. DAFLON [Concomitant]
     Indication: HER2 positive breast cancer
     Dosage: UNK
     Route: 065
     Dates: end: 20190907
  26. PANTOPRAZOLE SODIUM [Concomitant]
     Active Substance: PANTOPRAZOLE SODIUM
     Indication: Product used for unknown indication
     Dosage: UNK (ONGOING = CHECKED)
     Route: 065
     Dates: start: 20170302
  27. LYRICA [Concomitant]
     Active Substance: PREGABALIN
     Indication: Back pain
     Dosage: UNK
     Route: 065
     Dates: start: 20181227, end: 20190226
  28. TRAZODONE HYDROCHLORIDE [Concomitant]
     Active Substance: TRAZODONE HYDROCHLORIDE
     Indication: Product used for unknown indication
     Dosage: UNK
     Route: 065
     Dates: start: 20181215, end: 20190226
  29. TEMESTA [Concomitant]
     Indication: Product used for unknown indication
     Dosage: UNK
     Route: 065
     Dates: start: 20190226
  30. ZOLPIDEM [Concomitant]
     Active Substance: ZOLPIDEM TARTRATE
     Indication: Product used for unknown indication
     Dosage: UNK
     Route: 065
     Dates: start: 20190215, end: 20190315
  31. MIRTAZAPINE [Concomitant]
     Active Substance: MIRTAZAPINE
     Indication: Product used for unknown indication
     Dosage: UNK (ONGOING = CHECKED)
     Route: 065
     Dates: start: 20190315, end: 20190907
  32. TENOXSTAR [Concomitant]
     Indication: Product used for unknown indication
     Dosage: UNK
     Route: 065
  33. SUCRALFATE [Concomitant]
     Active Substance: SUCRALFATE
     Indication: Product used for unknown indication
     Dosage: UNK
     Route: 065
     Dates: end: 20190907
  34. BAMBUTEROL HYDROCHLORIDE [Concomitant]
     Active Substance: BAMBUTEROL HYDROCHLORIDE
     Indication: Product used for unknown indication
     Dosage: UNK
     Route: 065
  35. KALIORAL [Concomitant]
     Indication: Product used for unknown indication
     Dosage: UNK (ONGOING = CHECKED)
     Route: 065
  36. VENLAFAXINE HYDROCHLORIDE [Concomitant]
     Active Substance: VENLAFAXINE HYDROCHLORIDE
     Indication: Product used for unknown indication
     Dosage: UNK (ONGOING = NOT CHECKED)
     Route: 065
     Dates: start: 20190315, end: 20190907
  37. BUPRENORPHINE [Concomitant]
     Active Substance: BUPRENORPHINE
     Indication: Product used for unknown indication
     Dosage: UNK (ONGOING)
     Route: 065
  38. PARACODIN [Concomitant]
     Indication: Dyspnoea
     Dosage: UNK
     Route: 065
     Dates: start: 20190509
  39. PARACODIN [Concomitant]
     Dosage: UNK (ONGOING = CHECKED)
     Route: 065
     Dates: start: 20190510
  40. AUGMENTIN [Concomitant]
     Active Substance: AMOXICILLIN\CLAVULANATE POTASSIUM
     Indication: Respiratory tract infection
     Dosage: UNK (ONGOING = NOT CHECKED)
     Route: 065
     Dates: start: 20190509, end: 20190516
  41. CORTISONE ACETATE [Concomitant]
     Active Substance: CORTISONE ACETATE
     Indication: Respiratory tract infection
     Dosage: UNK (ONGOING = NOT CHECKED)
     Route: 065
     Dates: start: 20190615, end: 20190615
  42. DOXYCYCLINE [Concomitant]
     Active Substance: DOXYCYCLINE
     Indication: Respiratory tract infection
     Dosage: UNK (ONGOING = NOT CHECKED)
     Route: 065
     Dates: start: 20190502, end: 20190509
  43. EDOXABAN TOSYLATE [Concomitant]
     Active Substance: EDOXABAN TOSYLATE
     Indication: Pulmonary embolism
     Dosage: UNK (ONGOING = CHECKED)
     Route: 065
     Dates: start: 20190315, end: 20190907
  44. LACTULOSE [Concomitant]
     Active Substance: LACTULOSE
     Indication: Product used for unknown indication
     Dosage: UNK
     Route: 065
     Dates: start: 20171212, end: 20190907
  45. NOVALGIN [Concomitant]
     Indication: Back pain
     Dosage: UNK
     Route: 065
     Dates: start: 20171212, end: 20190907
  46. NOVALGIN [Concomitant]
     Indication: Hepatic pain
     Dosage: UNK
     Route: 065
     Dates: start: 20170327, end: 20191003
  47. NOVALGIN [Concomitant]
     Indication: Respiratory tract infection
     Dosage: UNK
     Route: 065
     Dates: start: 20190509, end: 20190509
  48. NOVALGIN [Concomitant]
     Dosage: UNK
     Route: 065
     Dates: start: 20190315, end: 20190907
  49. HYDROMORPHONE HYDROCHLORIDE [Concomitant]
     Active Substance: HYDROMORPHONE HYDROCHLORIDE
     Indication: Back pain
     Dosage: UNK
     Route: 065
     Dates: start: 20180628, end: 20190226
  50. HYDROMORPHONE HYDROCHLORIDE [Concomitant]
     Active Substance: HYDROMORPHONE HYDROCHLORIDE
     Dosage: UNK
     Route: 065
     Dates: start: 20181227, end: 20190907
  51. LASIX [Concomitant]
     Active Substance: FUROSEMIDE
     Indication: Product used for unknown indication
     Dosage: UNK
     Route: 065
     Dates: end: 20190907
  52. BISOPROLOL FUMARATE [Concomitant]
     Active Substance: BISOPROLOL FUMARATE
     Indication: Product used for unknown indication
     Dosage: UNK
     Route: 065
     Dates: end: 20190907
  53. BISOPROLOL FUMARATE [Concomitant]
     Active Substance: BISOPROLOL FUMARATE
     Dosage: UNK
     Route: 065
     Dates: end: 20190907
  54. SOLU DACORTIN [Concomitant]
     Indication: Product used for unknown indication
     Dosage: UNK
     Route: 065
  55. ACETAMINOPHEN [Concomitant]
     Active Substance: ACETAMINOPHEN
     Indication: Product used for unknown indication
     Dosage: UNK
     Route: 065
  56. DIMETHINDENE [Concomitant]
     Active Substance: DIMETHINDENE
     Indication: Product used for unknown indication
     Dosage: UNK
     Route: 065
  57. BUPRENORPHINE HYDROCHLORIDE [Concomitant]
     Active Substance: BUPRENORPHINE HYDROCHLORIDE
     Indication: Product used for unknown indication
     Dosage: UNK
     Route: 065
  58. MORPHINE [Concomitant]
     Active Substance: MORPHINE
     Indication: Product used for unknown indication
     Dosage: UNK
     Route: 065
  59. DIAMOX SEQUELS [Concomitant]
     Active Substance: ACETAZOLAMIDE
     Indication: Product used for unknown indication
     Dosage: UNK
     Route: 065
  60. RANITIDINE HYDROCHLORIDE [Concomitant]
     Active Substance: RANITIDINE HYDROCHLORIDE
     Indication: Product used for unknown indication
     Dosage: UNK
     Route: 065
  61. DEXAMETHASONE [Concomitant]
     Active Substance: DEXAMETHASONE
     Indication: Product used for unknown indication
     Dosage: UNK
     Route: 065
     Dates: start: 20190215, end: 20190215
  62. DEXAMETHASONE [Concomitant]
     Active Substance: DEXAMETHASONE
     Dosage: UNK
     Route: 065
     Dates: start: 20190215, end: 20190907
  63. LAPATINIB DITOSYLATE [Concomitant]
     Active Substance: LAPATINIB DITOSYLATE
     Indication: Product used for unknown indication
     Dosage: 1000 MG, QD
     Route: 048
     Dates: start: 20181227, end: 20190116
  64. LAPATINIB DITOSYLATE [Concomitant]
     Active Substance: LAPATINIB DITOSYLATE
     Dosage: 750 MG, QD
     Route: 048
     Dates: start: 20190116, end: 20190206
  65. MANNIT [Concomitant]
     Indication: Product used for unknown indication
     Dosage: UNK
     Route: 065
  66. MORPHINE [Concomitant]
     Active Substance: MORPHINE
     Indication: Product used for unknown indication
     Dosage: UNK
     Route: 065
  67. AMOXICILLIN\CLAVULANATE POTASSIUM [Concomitant]
     Active Substance: AMOXICILLIN\CLAVULANATE POTASSIUM
     Indication: Respiratory tract infection
     Dosage: UNK (ONGOING = NOT CHECKED)
     Route: 065
     Dates: start: 20190509, end: 20190516
  68. LOVENOX [Concomitant]
     Active Substance: ENOXAPARIN SODIUM
     Indication: Product used for unknown indication
     Dosage: UNK (ONGOING = NOT CHECKED)
     Route: 065
     Dates: start: 20180126, end: 20180208

REACTIONS (23)
  - Vomiting [Recovered/Resolved]
  - Dyspnoea exertional [Not Recovered/Not Resolved]
  - Blindness [Recovered/Resolved with Sequelae]
  - Headache [Unknown]
  - Headache [Recovered/Resolved]
  - Vomiting [Recovered/Resolved]
  - Angina pectoris [Recovered/Resolved]
  - Visual impairment [Recovered/Resolved]
  - Polyneuropathy [Recovered/Resolved]
  - Headache [Recovered/Resolved]
  - Vertigo [Recovered/Resolved]
  - Vomiting [Recovered/Resolved]
  - Cough [Recovered/Resolved]
  - Epistaxis [Recovered/Resolved]
  - Nausea [Recovered/Resolved]
  - Myalgia [Recovered/Resolved]
  - Bone pain [Recovered/Resolved]
  - Vertigo [Not Recovered/Not Resolved]
  - Polyneuropathy [Not Recovered/Not Resolved]
  - Chills [Recovered/Resolved]
  - Headache [Recovered/Resolved]
  - Diarrhoea [Recovered/Resolved]
  - Underdose [Unknown]

NARRATIVE: CASE EVENT DATE: 20170306
